FAERS Safety Report 17572596 (Version 1)
Quarter: 2020Q1

REPORT INFORMATION
  Report Type: Spontaneous
  Country: US (occurrence: US)
  Receive Date: 20200318
  Receipt Date: 20200318
  Transmission Date: 20200409
  Serious: Yes (Hospitalization)
  Sender: FDA-Public Use
  Company Number: None

PATIENT
  Age: 66 Year
  Sex: Male

DRUGS (8)
  1. LIPITOR [Concomitant]
     Active Substance: ATORVASTATIN CALCIUM
  2. KETOCONAZOLE. [Concomitant]
     Active Substance: KETOCONAZOLE
  3. ASPIRIN. [Concomitant]
     Active Substance: ASPIRIN
  4. HUMIRA [Suspect]
     Active Substance: ADALIMUMAB
     Indication: PSORIASIS
     Dosage: ?          OTHER FREQUENCY:Q14D;?
     Route: 058
  5. ATORVASTATIN [Concomitant]
     Active Substance: ATORVASTATIN
  6. APRISO [Concomitant]
     Active Substance: MESALAMINE
  7. FINASTERIDE. [Concomitant]
     Active Substance: FINASTERIDE
  8. DILTIAZEM. [Concomitant]
     Active Substance: DILTIAZEM

REACTIONS (1)
  - Cardiac operation [None]
